FAERS Safety Report 14599024 (Version 2)
Quarter: 2018Q1

REPORT INFORMATION
  Report Type: Spontaneous
  Country: DE (occurrence: DE)
  Receive Date: 20180305
  Receipt Date: 20180305
  Transmission Date: 20180509
  Serious: Yes (Death, Hospitalization, Other)
  Sender: FDA-Public Use
  Company Number: DE-CONCORDIA PHARMACEUTICALS INC.-E2B_00010145

PATIENT
  Age: 73 Year
  Sex: Male

DRUGS (16)
  1. ONDANSETRON [Concomitant]
     Active Substance: ONDANSETRON
     Indication: PREMEDICATION
     Dosage: DOSAGE FORM: UNSPECIFIED
     Route: 065
  2. DOXORUBICIN HYDROCHLORID [Suspect]
     Active Substance: DOXORUBICIN HYDROCHLORIDE
     Indication: PERIPHERAL T-CELL LYMPHOMA UNSPECIFIED
     Route: 065
     Dates: start: 20140901
  3. GEMCITABINE [Suspect]
     Active Substance: GEMCITABINE\GEMCITABINE HYDROCHLORIDE
     Indication: COMPOSITE LYMPHOMA
     Dosage: UNK, CYCLIC
     Route: 065
  4. PIXANTRONE [Suspect]
     Active Substance: PIXANTRONE
     Indication: LEUKOPENIA
     Dosage: UNK
     Route: 065
     Dates: start: 20150601, end: 20150701
  5. OXALIPLATIN. [Suspect]
     Active Substance: OXALIPLATIN
     Indication: COMPOSITE LYMPHOMA
     Dosage: UNK, CYCLIC
     Route: 065
  6. VINCRISTINE [Suspect]
     Active Substance: VINCRISTINE
     Indication: LEUKOPENIA
     Dosage: UNK, Q2WK (14 DAYS CYCLE)
     Route: 065
     Dates: start: 20150101
  7. NAFTIDROFURYL OXALAT [Concomitant]
     Dosage: DOSAGE FORM: UNKNOWN
     Route: 065
  8. PREDNISOLONE. [Suspect]
     Active Substance: PREDNISOLONE
     Indication: LEUKOPENIA
     Dosage: UNK, Q2WK (14 DAYS CYCLE)
     Route: 065
     Dates: start: 20150101
  9. NEUPOGEN [Suspect]
     Active Substance: FILGRASTIM
     Indication: LEUKOPENIA
     Dosage: 48 MILLION UNIT, QD (FOR 5 DAYS)
     Route: 058
     Dates: start: 20150101
  10. BENDAMUSTINE [Suspect]
     Active Substance: BENDAMUSTINE
     Indication: LEUKOPENIA
     Dosage: UNK, CYCLIC
     Route: 065
  11. METOPROLOL SUCCINAT [Concomitant]
     Dosage: DOSAGE FORM: UNKNOWN
     Route: 065
  12. DOXORUBICIN HYDROCHLORID [Suspect]
     Active Substance: DOXORUBICIN HYDROCHLORIDE
     Indication: B-CELL LYMPHOMA
     Dosage: PEGYLATED LIPOSOMAL-ENCAPSULATED
     Route: 065
     Dates: start: 20140901
  13. ETOPOSIDE. [Suspect]
     Active Substance: ETOPOSIDE
     Indication: LYMPHOMA
     Dosage: UNK
     Route: 065
     Dates: start: 20150601, end: 20150701
  14. FILGRASTIM [Suspect]
     Active Substance: FILGRASTIM
     Indication: COMPOSITE LYMPHOMA
     Dosage: 48 MIO U [SIC] FOR 5 DAYS DAILY DOSAGE
     Route: 058
  15. CYCLOPHOSPHAMIDE. [Suspect]
     Active Substance: CYCLOPHOSPHAMIDE
     Indication: LEUKOPENIA
     Dosage: UNK, Q2WK (14 DAYS CYCLE)
     Route: 065
     Dates: start: 20150101
  16. AMINOSALICYLIC ACID [Concomitant]
     Active Substance: AMINOSALICYLIC ACID
     Dosage: DOSAGE FORM: UNKNOWN
     Route: 065

REACTIONS (14)
  - Skin toxicity [Unknown]
  - Pneumonia [Fatal]
  - Rash papular [Unknown]
  - Rash maculo-papular [Unknown]
  - Rash [Recovered/Resolved]
  - Product use in unapproved indication [Unknown]
  - B-cell lymphoma [Fatal]
  - Off label use [Unknown]
  - Leukopenia [Unknown]
  - Peripheral T-cell lymphoma unspecified [Fatal]
  - Drug eruption [Recovered/Resolved]
  - Palmar-plantar erythrodysaesthesia syndrome [Unknown]
  - Pyrexia [Unknown]
  - Bone marrow toxicity [Unknown]

NARRATIVE: CASE EVENT DATE: 20141101
